FAERS Safety Report 4776881-9 (Version None)
Quarter: 2005Q3

REPORT INFORMATION
  Report Type: 
  Country: None (occurrence: None)
  Receive Date: 20050923
  Receipt Date: 20050914
  Transmission Date: 20060218
  Serious: Yes (Other)
  Sender: FDA-Public Use
  Company Number: JP-BRISTOL-MYERS SQUIBB COMPANY-13117288

PATIENT
  Age: 53 Year
  Sex: Female

DRUGS (7)
  1. ENDOXAN [Suspect]
     Indication: SYSTEMIC LUPUS ERYTHEMATOSUS
     Dates: start: 19930406, end: 19951225
  2. PREDNISOLONE [Concomitant]
     Dates: start: 19790101
  3. KOLANTYL [Concomitant]
  4. CALCIUM LACTATE [Concomitant]
  5. ALFAROL [Concomitant]
  6. BEZAFIBRATE [Concomitant]
  7. NIVADIL [Concomitant]

REACTIONS (2)
  - LARGE INTESTINE CARCINOMA [None]
  - TREATMENT RELATED SECONDARY MALIGNANCY [None]
